FAERS Safety Report 9099301 (Version 1)
Quarter: 2013Q1

REPORT INFORMATION
  Report Type: Report from Study
  Country: GB (occurrence: GB)
  Receive Date: 20130214
  Receipt Date: 20130214
  Transmission Date: 20140127
  Serious: Yes (Hospitalization)
  Sender: FDA-Public Use
  Company Number: GB-PFIZER INC-2013048883

PATIENT
  Sex: 0

DRUGS (8)
  1. CYCLOPHOSPHAMIDE [Suspect]
     Indication: CHRONIC LYMPHOCYTIC LEUKAEMIA
     Dosage: 300 MG, 1-5 DAYS
     Route: 048
     Dates: start: 20111220
  2. CYCLOPHOSPHAMIDE [Suspect]
     Dosage: UNK
     Route: 048
     Dates: start: 20120115
  3. MITOXANTRONE HCL [Suspect]
     Indication: CHRONIC LYMPHOCYTIC LEUKAEMIA
     Dosage: 11.5 MG, ONCE
     Route: 042
     Dates: start: 20111220
  4. MITOXANTRONE HCL [Suspect]
     Dosage: 11.3 MG, ONCE
     Dates: start: 20120111
  5. FLUDARABINE [Suspect]
     Indication: CHRONIC LYMPHOCYTIC LEUKAEMIA
     Dosage: 45 MG, 1-5 DAYS
     Route: 048
     Dates: start: 20111220
  6. FLUDARABINE [Suspect]
     Dosage: 50 MG, 1-5 DAYS
     Route: 048
     Dates: start: 20120115
  7. RITUXIMAB [Suspect]
     Indication: CHRONIC LYMPHOCYTIC LEUKAEMIA
     Dosage: 600 MG, ONCE
     Route: 042
     Dates: start: 20111220
  8. RITUXIMAB [Suspect]
     Dosage: 900 MG, ONCE
     Route: 042
     Dates: start: 20120111

REACTIONS (1)
  - Neutropenic sepsis [Recovered/Resolved]
